FAERS Safety Report 5273189-2 (Version None)
Quarter: 2007Q1

REPORT INFORMATION
  Report Type: 
  Country: None (occurrence: None)
  Receive Date: 20070322
  Receipt Date: 20070312
  Transmission Date: 20070707
  Serious: Yes (Hospitalization, Other)
  Sender: FDA-Public Use
  Company Number: US-PFIZER INC-2007019730

PATIENT
  Sex: Male
  Weight: 62.6 kg

DRUGS (6)
  1. CHANTIX [Suspect]
     Indication: SMOKING CESSATION THERAPY
     Route: 048
     Dates: start: 20070101, end: 20070301
  2. HYDRALAZINE HCL [Concomitant]
     Route: 048
  3. ATACAND [Concomitant]
     Route: 048
  4. CARDIZEM [Concomitant]
     Route: 048
  5. CRESTOR [Concomitant]
     Route: 048
  6. PLAVIX [Concomitant]
     Route: 048

REACTIONS (3)
  - ABDOMINAL PAIN UPPER [None]
  - CHOLECYSTECTOMY [None]
  - WHITE BLOOD CELL COUNT INCREASED [None]
